FAERS Safety Report 6740777-3 (Version None)
Quarter: 2010Q2

REPORT INFORMATION
  Report Type: 
  Country: None (occurrence: None)
  Receive Date: 20100524
  Receipt Date: 20100512
  Transmission Date: 20101027
  Serious: Yes (Hospitalization)
  Sender: FDA-Public Use
  Company Number: 011629

PATIENT
  Sex: Female
  Weight: 95.5 kg

DRUGS (28)
  1. CERTOLIZUMAB PEGOL [Suspect]
     Indication: RHEUMATOID ARTHRITIS
     Dosage: 200 MG 1X/2 WEEKS SUBCUTANEOUS
     Route: 058
     Dates: start: 20100406
  2. METHADONE [Concomitant]
  3. OXYCODONE [Concomitant]
  4. FOLIC ACID [Concomitant]
  5. HYZAAR [Concomitant]
  6. LESCOL XL [Concomitant]
  7. SINGULAIR [Concomitant]
  8. K-DUR [Concomitant]
  9. LASIX [Concomitant]
  10. LEXAPRO [Concomitant]
  11. ADVAIR DISKUS 100/50 [Concomitant]
  12. CALTRATE + D [Concomitant]
  13. MAGNESIUM OXIDE [Concomitant]
  14. TAPAZOLE [Concomitant]
  15. ALLEGRA D 24 HOUR [Concomitant]
  16. MULTI-VITAMINS [Concomitant]
  17. ASPIRIN [Concomitant]
  18. FERROUS SULFATE TAB [Concomitant]
  19. METFORMIN HYDROCHLORIDE [Concomitant]
  20. STARLIX [Concomitant]
  21. BENTYL [Concomitant]
  22. LYRICA [Concomitant]
  23. NEXIUM [Concomitant]
  24. CELEXA [Concomitant]
  25. ZANTAC [Concomitant]
  26. CHLORASEPTIC [Concomitant]
  27. DEPO-MEDROL [Concomitant]
  28. ZITHROMAX [Concomitant]

REACTIONS (10)
  - BLOOD POTASSIUM DECREASED [None]
  - CARDIAC FAILURE CONGESTIVE [None]
  - CHRONIC OBSTRUCTIVE PULMONARY DISEASE [None]
  - DEPRESSED LEVEL OF CONSCIOUSNESS [None]
  - DRUG SCREEN POSITIVE [None]
  - HAEMOGLOBIN DECREASED [None]
  - PLEURAL EFFUSION [None]
  - PNEUMONIA [None]
  - SINUS TACHYCARDIA [None]
  - WHITE BLOOD CELL COUNT DECREASED [None]
